FAERS Safety Report 12421914 (Version 1)
Quarter: 2016Q2

REPORT INFORMATION
  Report Type: Spontaneous
  Country: US (occurrence: US)
  Receive Date: 20160531
  Receipt Date: 20160531
  Transmission Date: 20160815
  Serious: Yes (Other)
  Sender: FDA-Public Use
  Company Number: US-MDT-ADR-2016-00220

PATIENT
  Age: 50 Year
  Sex: Male

DRUGS (17)
  1. WELLBUTRIN XL [Suspect]
     Active Substance: BUPROPION HYDROCHLORIDE
     Route: 048
  2. LIORESAL [Suspect]
     Active Substance: BACLOFEN
     Dosage: 10 MG TAB; 1-2 TABS BY MOUTH EVERY 4 HOURS AS NEEDED
     Route: 048
  3. DILAUDID [Suspect]
     Active Substance: HYDROMORPHONE HYDROCHLORIDE
  4. LIORESAL [Suspect]
     Active Substance: BACLOFEN
     Route: 037
  5. GLUCOSE [Suspect]
     Active Substance: DEXTROSE
     Dosage: 4 G CHEW TAB; 8 TABLETS BY MOUTH AS NEEDED
     Route: 048
  6. ZANTAC [Suspect]
     Active Substance: RANITIDINE HYDROCHLORIDE
  7. BACLOFEN. [Suspect]
     Active Substance: BACLOFEN
     Dosage: 549.5 MCG/DAY
     Route: 037
  8. LEXAPRO [Suspect]
     Active Substance: ESCITALOPRAM OXALATE
     Route: 048
  9. BACLOFEN. [Suspect]
     Active Substance: BACLOFEN
     Dosage: 500.5 MCG/DAY
     Route: 037
  10. VALIUM [Suspect]
     Active Substance: DIAZEPAM
  11. ELIQUIS [Suspect]
     Active Substance: APIXABAN
  12. BACLOFEN. [Suspect]
     Active Substance: BACLOFEN
     Dosage: 99.9 MCG/DAY
     Route: 037
  13. BACLOFEN. [Suspect]
     Active Substance: BACLOFEN
     Route: 037
  14. CIALIS [Suspect]
     Active Substance: TADALAFIL
  15. ALBUTEROL HFA [Suspect]
     Active Substance: ALBUTEROL SULFATE
  16. HIPREX [Suspect]
     Active Substance: METHENAMINE HIPPURATE
     Dosage: 1 G TAB
     Route: 048
  17. GLUCOPHAGE [Suspect]
     Active Substance: METFORMIN HYDROCHLORIDE
     Route: 048

REACTIONS (1)
  - Abdominal rigidity [Unknown]

NARRATIVE: CASE EVENT DATE: 201601
